FAERS Safety Report 4638549-9 (Version None)
Quarter: 2005Q2

REPORT INFORMATION
  Report Type: 
  Country: None (occurrence: None)
  Receive Date: 20050419
  Receipt Date: 20050406
  Transmission Date: 20051028
  Serious: Yes (Hospitalization, Other)
  Sender: FDA-Public Use
  Company Number: GB-JNJFOC-20050401775

PATIENT
  Sex: Female
  Weight: 54 kg

DRUGS (9)
  1. REMICADE [Suspect]
     Indication: RHEUMATOID ARTHRITIS
     Route: 042
  2. FOSAMAX [Concomitant]
  3. PREDNISOLONE [Concomitant]
  4. RANITIDINE [Concomitant]
  5. ACETAMINOPHEN [Concomitant]
  6. NAPROXEN [Concomitant]
  7. CO-TENIDONE [Concomitant]
  8. CO-TENIDONE [Concomitant]
  9. FERROUS SULFATE TAB [Concomitant]

REACTIONS (3)
  - ACUTE CORONARY SYNDROME [None]
  - CARDIAC PACEMAKER INSERTION [None]
  - VENTRICULAR TACHYCARDIA [None]
